FAERS Safety Report 11156602 (Version 1)
Quarter: 2015Q2

REPORT INFORMATION
  Report Type: Spontaneous
  Country: None (occurrence: None)
  Receive Date: 20150601
  Receipt Date: 20150601
  Transmission Date: 20150821
  Serious: Yes (Life-Threatening, Disabling, Other)
  Sender: FDA-Public Use
  Company Number: None

PATIENT
  Age: 49 Year
  Sex: Female
  Weight: 75 kg

DRUGS (4)
  1. AUGUMENTINE [Concomitant]
  2. PANADOL [Concomitant]
     Active Substance: ACETAMINOPHEN
  3. MIRENA [Suspect]
     Active Substance: LEVONORGESTREL
     Indication: CONTRACEPTION
     Dosage: 20MG PER 24HRS  ONCE DAILY VAGINAL
     Route: 067
     Dates: start: 20150326, end: 20150414
  4. IRON [Concomitant]
     Active Substance: IRON

REACTIONS (3)
  - Uterine infection [None]
  - Uterine disorder [None]
  - Blood iron decreased [None]

NARRATIVE: CASE EVENT DATE: 20150326
